FAERS Safety Report 16036110 (Version 3)
Quarter: 2021Q4

REPORT INFORMATION
  Report Type: Report from Study
  Country: CA (occurrence: CA)
  Receive Date: 20190305
  Receipt Date: 20211028
  Transmission Date: 20220303
  Serious: Yes (Hospitalization)
  Sender: FDA-Public Use
  Company Number: CA-JNJFOC-20190230831

PATIENT
  Age: 77 Year
  Sex: Female
  Weight: 34.93 kg

DRUGS (4)
  1. STELARA [Suspect]
     Active Substance: USTEKINUMAB
     Indication: Psoriasis
     Route: 058
  2. STELARA [Suspect]
     Active Substance: USTEKINUMAB
     Route: 058
     Dates: start: 20180228
  3. STELARA [Suspect]
     Active Substance: USTEKINUMAB
     Route: 058
     Dates: start: 20180301
  4. STELARA [Suspect]
     Active Substance: USTEKINUMAB
     Dosage: PATIENT WAS OPTIMIZED DOSE 90 MG EVERY 8 WEEKS IN JAN-2019.
     Route: 058
     Dates: start: 20190107

REACTIONS (1)
  - Pyelonephritis acute [Recovering/Resolving]

NARRATIVE: CASE EVENT DATE: 20190217
